APPROVED DRUG PRODUCT: CARDURA
Active Ingredient: DOXAZOSIN MESYLATE
Strength: EQ 1MG BASE
Dosage Form/Route: TABLET;ORAL
Application: N019668 | Product #001 | TE Code: AB
Applicant: VIATRIS SPECIALTY LLC
Approved: Nov 2, 1990 | RLD: Yes | RS: Yes | Type: RX